FAERS Safety Report 7425751-6 (Version None)
Quarter: 2011Q2

REPORT INFORMATION
  Report Type: 
  Country: None (occurrence: None)
  Receive Date: 20110420
  Receipt Date: 20110415
  Transmission Date: 20111010
  Serious: Yes (Hospitalization)
  Sender: FDA-Public Use
  Company Number: US-BRISTOL-MYERS SQUIBB COMPANY-15522832

PATIENT
  Age: 61 Year
  Sex: Female
  Weight: 60 kg

DRUGS (7)
  1. ERBITUX [Suspect]
     Indication: CERVIX CARCINOMA
     Dates: start: 20110124
  2. OMEPRAZOLE [Concomitant]
  3. PRAVACHOL [Concomitant]
  4. GLIPIZIDE [Suspect]
  5. LISINOPRIL [Concomitant]
  6. CISPLATIN [Suspect]
     Indication: CERVIX CARCINOMA
     Dates: start: 20110124
  7. GLUCOPHAGE [Suspect]

REACTIONS (4)
  - GRANULOCYTE COUNT DECREASED [None]
  - HYPOKALAEMIA [None]
  - DIARRHOEA [None]
  - DEHYDRATION [None]
